FAERS Safety Report 9024232 (Version 3)
Quarter: 2013Q1

REPORT INFORMATION
  Report Type: Spontaneous
  Country: FR (occurrence: FR)
  Receive Date: 20130121
  Receipt Date: 20130130
  Transmission Date: 20140127
  Serious: Yes (Death, Hospitalization, Other)
  Sender: FDA-Public Use
  Company Number: FR-JNJFOC-20130102547

PATIENT
  Age: 84 None
  Sex: Male

DRUGS (2)
  1. ZYTIGA [Suspect]
     Indication: PRODUCT USED FOR UNKNOWN INDICATION
     Route: 048
     Dates: start: 20120927
  2. ZOMETA [Suspect]
     Indication: PRODUCT USED FOR UNKNOWN INDICATION
     Route: 042
     Dates: start: 20121124, end: 20121124

REACTIONS (16)
  - General physical health deterioration [Fatal]
  - Dehydration [Fatal]
  - Pain [Fatal]
  - Oedema peripheral [Fatal]
  - Dysuria [Fatal]
  - Renal failure [Fatal]
  - Hypocalcaemia [Fatal]
  - Hypokalaemia [Fatal]
  - Pleural effusion [Fatal]
  - Cardiac arrest [Fatal]
  - Psychomotor skills impaired [Unknown]
  - Agitation [Unknown]
  - Dyspnoea [Unknown]
  - Oxygen saturation decreased [Unknown]
  - Malaise [Unknown]
  - Fatigue [Unknown]
